FAERS Safety Report 15877517 (Version 1)
Quarter: 2019Q1

REPORT INFORMATION
  Report Type: Spontaneous
  Country: FR (occurrence: FR)
  Receive Date: 20190128
  Receipt Date: 20190128
  Transmission Date: 20190417
  Serious: Yes (Life-Threatening)
  Sender: FDA-Public Use
  Company Number: FR-ZYDUS-032912

PATIENT
  Age: 51 Year
  Sex: Male
  Weight: 96 kg

DRUGS (4)
  1. PAROXETINE. [Suspect]
     Active Substance: PAROXETINE
     Indication: INTENTIONAL OVERDOSE
     Route: 048
     Dates: start: 20181227
  2. DIAZEPAM. [Suspect]
     Active Substance: DIAZEPAM
     Indication: INTENTIONAL OVERDOSE
     Dosage: ()
     Route: 048
     Dates: start: 20181227
  3. CYAMEMAZINE [Suspect]
     Active Substance: CYAMEMAZINE
     Indication: INTENTIONAL OVERDOSE
     Dosage: ()
     Route: 048
     Dates: start: 20181227
  4. OXAZEPAM. [Suspect]
     Active Substance: OXAZEPAM
     Indication: INTENTIONAL OVERDOSE
     Dosage: ()
     Route: 048
     Dates: start: 20181227

REACTIONS (3)
  - Coma [Recovered/Resolved]
  - Miosis [Recovering/Resolving]
  - Intentional overdose [Recovering/Resolving]

NARRATIVE: CASE EVENT DATE: 20181227
